FAERS Safety Report 5737632-4 (Version None)
Quarter: 2008Q2

REPORT INFORMATION
  Report Type: 
  Country: None (occurrence: None)
  Receive Date: 20080512
  Receipt Date: 20080512
  Transmission Date: 20081010
  Serious: Yes (Other)
  Sender: FDA-Public Use
  Company Number: None

PATIENT
  Age: 79 Year
  Sex: Male

DRUGS (2)
  1. MICARDIS [Suspect]
     Indication: HYPERTENSION
     Dosage: 40MG Q24H PO
     Route: 048
     Dates: start: 20071127, end: 20080102
  2. ATACAND [Suspect]
     Indication: HYPERTENSION
     Dosage: 8MG Q24H PO
     Route: 048
     Dates: start: 20080102, end: 20080212

REACTIONS (2)
  - DIZZINESS [None]
  - PRURITUS [None]
